FAERS Safety Report 19744670 (Version 1)
Quarter: 2021Q3

REPORT INFORMATION
  Report Type: Spontaneous
  Country: FR (occurrence: FR)
  Receive Date: 20210825
  Receipt Date: 20210825
  Transmission Date: 20211014
  Serious: Yes (Hospitalization, Other)
  Sender: FDA-Public Use
  Company Number: FR-MYLANLABS-2021M1054259

PATIENT
  Age: 31 Year
  Sex: Female

DRUGS (11)
  1. MISOPROSTOL. [Concomitant]
     Active Substance: MISOPROSTOL
     Dosage: 400 MILLIGRAM
     Route: 067
     Dates: start: 20210212
  2. EPINEPHRINE. [Suspect]
     Active Substance: EPINEPHRINE
     Indication: EPIDURAL ANALGESIA
     Dosage: XYLOCAINE 1% WITH EPINEPHRINE TEST DOSE: 5CC NTR
     Route: 065
  3. GENTAMICIN. [Concomitant]
     Active Substance: GENTAMICIN
     Indication: AMNIOTIC CAVITY INFECTION
     Dosage: FOR 24 HOURS, AUGMENTIN + GENTA.
     Route: 065
  4. SUFENTANIL [Suspect]
     Active Substance: SUFENTANIL
     Indication: EPIDURAL ANAESTHESIA
     Dosage: UNK SUFENA 10 GAMMA, 6 ML/H WITH BOLUS POSSIBLE EVERY 15 MIN WITH A MAXIMUM DOSE OF 90 CC
     Route: 065
  5. LIDOCAINE. [Suspect]
     Active Substance: LIDOCAINE
     Indication: EPIDURAL ANALGESIA
     Dosage: XYLOCAINE 1% LOCAL ANAESTHETIC: 2CC. XYLOCAINE 1% WITH EPINEPHRINE TEST DOSE: 5CC NTR
     Route: 065
  6. MISOPROSTOL. [Concomitant]
     Active Substance: MISOPROSTOL
     Indication: ABORTION INDUCED
     Dosage: UNK
     Dates: start: 20210213
  7. PHLOROGLUCINOL W/TRIMETHYLPHLOROGLUCINOL [Concomitant]
     Active Substance: PHLOROGLUCINOL\1,3,5-TRIMETHOXYBENZENE
     Indication: PAIN
     Dosage: 3 DOSAGE FORM, QD
     Route: 065
  8. ROPIVACAINE FRESENIUS KABI [Suspect]
     Active Substance: ROPIVACAINE HYDROCHLORIDE
     Indication: EPIDURAL ANALGESIA
     Dosage: THREE BAGS OF 100ML, ROPIVACAINE 2 MG/ML: PURE
     Route: 065
     Dates: start: 20210208, end: 20210209
  9. PREGABALIN. [Concomitant]
     Active Substance: PREGABALIN
     Indication: PAIN IN EXTREMITY
     Dosage: UNK
     Route: 065
  10. PARACETAMOL [Concomitant]
     Active Substance: ACETAMINOPHEN
     Indication: PAIN
     Dosage: 3 GRAM, QD
     Route: 065
  11. AMOXICILLIN AND CLAVULANATE POTASSIUM [Concomitant]
     Active Substance: AMOXICILLIN\CLAVULANATE POTASSIUM
     Indication: AMNIOTIC CAVITY INFECTION
     Dosage: FOR 24 HOURS, AUGMENTIN + GENTA.
     Route: 065

REACTIONS (1)
  - Paralysis [Unknown]

NARRATIVE: CASE EVENT DATE: 20210209
